FAERS Safety Report 5179172-X (Version None)
Quarter: 2006Q4

REPORT INFORMATION
  Report Type: 
  Country: None (occurrence: None)
  Receive Date: 20061219
  Receipt Date: 20061213
  Transmission Date: 20070319
  Serious: Yes (Death)
  Sender: FDA-Public Use
  Company Number: GB-SANOFI-SYNTHELABO-F01200602508

PATIENT
  Sex: Female
  Weight: 48 kg

DRUGS (3)
  1. FLUOROURACIL [Suspect]
     Dosage: 600 MG BOLUS FOLLOWED BY 3600 MG INFUSION DAYS 1 AND 2
     Route: 041
     Dates: start: 20061117, end: 20061118
  2. LEUCOVORIN CALCIUM [Suspect]
     Route: 041
  3. OXALIPLATIN [Suspect]
     Indication: COLORECTAL CANCER METASTATIC
     Route: 041
     Dates: start: 20061117, end: 20061117

REACTIONS (4)
  - BRONCHOPNEUMONIA [None]
  - INTESTINAL PERFORATION [None]
  - NEUTROPENIA [None]
  - POST PROCEDURAL COMPLICATION [None]
